FAERS Safety Report 9394619 (Version 1)
Quarter: 2013Q3

REPORT INFORMATION
  Report Type: Spontaneous
  Country: GB (occurrence: GB)
  Receive Date: 20130711
  Receipt Date: 20130711
  Transmission Date: 20140515
  Serious: Yes (Other)
  Sender: FDA-Public Use
  Company Number: GB-SANOFI-AVENTIS-2013SA067503

PATIENT
  Age: 55 Year
  Sex: Female
  Weight: 73.02 kg

DRUGS (4)
  1. LANTUS [Suspect]
     Indication: TYPE 1 DIABETES MELLITUS
     Dosage: DOSE:10 UNIT(S)
     Route: 051
     Dates: start: 20030101, end: 20130331
  2. HUMALOG [Concomitant]
  3. ATORVASTATIN [Concomitant]
  4. LISINOPRIL [Concomitant]

REACTIONS (2)
  - Sleep disorder [Recovered/Resolved]
  - Drug administration error [Unknown]
